FAERS Safety Report 8495675 (Version 3)
Quarter: 2012Q4

REPORT INFORMATION
  Report Type: 
  Country: FR (occurrence: FR)
  Receive Date: 20120405
  Receipt Date: 20120926
  Transmission Date: 20130627
  Serious: Yes (Other)
  Sender: FDA-Public Use
  Company Number: PHHY2012FR028135

PATIENT
  Age: 56 Year
  Sex: Male

DRUGS (3)
  1. CICLOSPORIN [Suspect]
     Indication: HEART AND LUNG TRANSPLANT
     Dosage: target blood level: 280-320 ng/ml
  2. MYCOPHENOLATE MOFETIL [Suspect]
     Indication: HEART AND LUNG TRANSPLANT
     Dosage: 2 g/day
  3. PREDNISOLONE [Suspect]
     Indication: HEART AND LUNG TRANSPLANT
     Dosage: 20 mg/day

REACTIONS (12)
  - Acute pulmonary oedema [Recovered/Resolved]
  - Hallucination [Recovered/Resolved]
  - Phaehyphomycosis [Recovered/Resolved]
  - Alternaria infection [Recovered/Resolved]
  - Confusional state [Recovered/Resolved]
  - Skin necrosis [Recovered/Resolved]
  - Subcutaneous abscess [Recovered/Resolved]
  - Skin lesion [Recovered/Resolved]
  - Pneumonia bacterial [Recovered/Resolved]
  - Candidiasis [Recovered/Resolved]
  - Endocarditis bacterial [Recovered/Resolved]
  - Mediastinitis [Recovered/Resolved]
